FAERS Safety Report 4640346-5 (Version None)
Quarter: 2005Q2

REPORT INFORMATION
  Report Type: 
  Country: None (occurrence: None)
  Receive Date: 20050419
  Receipt Date: 20050405
  Transmission Date: 20051028
  Serious: Yes (Death, Other)
  Sender: FDA-Public Use
  Company Number: 2005S1000059

PATIENT
  Age: 33 Year
  Sex: Female
  Weight: 75 kg

DRUGS (12)
  1. CUBICIN [Suspect]
     Indication: ENTEROCOCCAL BACTERAEMIA
     Dosage: 300 MG; X1; IV
     Route: 042
     Dates: start: 20050403, end: 20050405
  2. CASPOFUNGIN [Concomitant]
  3. ACYCLOVIR [Concomitant]
  4. ZOSYN [Concomitant]
  5. METRONIDAZOLE [Concomitant]
  6. TOBRAMYCIN [Concomitant]
  7. NEUPOGEN [Concomitant]
  8. TPN [Concomitant]
  9. LIPIDS [Concomitant]
  10. STEROID CREAM [Concomitant]
  11. CHEMOTHERAPY [Concomitant]
  12. TACROLIMUS [Concomitant]

REACTIONS (3)
  - BLOOD CREATININE INCREASED [None]
  - HAEMORRHAGE [None]
  - SEPSIS [None]
